FAERS Safety Report 5245359-0 (Version None)
Quarter: 2007Q1

REPORT INFORMATION
  Report Type: 
  Country: None (occurrence: None)
  Receive Date: 20070223
  Receipt Date: 20070213
  Transmission Date: 20070707
  Serious: Yes (Hospitalization)
  Sender: FDA-Public Use
  Company Number: GBWYE162115JAN07

PATIENT
  Sex: Male

DRUGS (10)
  1. VENLAFAXINE HYDROCHLORIDE [Suspect]
     Indication: DEPRESSION
     Dosage: 150 MG FREQUENCY UNSPECIFIED
     Dates: start: 19990101
  2. VENLAFAXINE HYDROCHLORIDE [Suspect]
     Dosage: 225 MG FREQUENCY UNSPECIFIED
     Dates: end: 19990701
  3. VENLAFAXINE HYDROCHLORIDE [Suspect]
     Dosage: 150MG FREQUENCY UNSPECIFIED
     Dates: start: 19990701
  4. VENLAFAXINE HYDROCHLORIDE [Suspect]
     Dosage: 75 MG FREQUENCY UNSPECIFIED
     Dates: end: 20000101
  5. VENLAFAXINE HYDROCHLORIDE [Suspect]
     Dosage: 75MG FREQUENCY UNSPECIFIED
     Route: 048
  6. VENLAFAXINE HYDROCHLORIDE [Suspect]
     Route: 048
     Dates: end: 20060213
  7. PARACETAMOL [Concomitant]
     Dosage: PER REQUESTED NEED
     Route: 048
  8. ZOPICLONE [Concomitant]
     Dosage: UNKNOWN
     Route: 048
  9. IBUPROFEN [Concomitant]
     Route: 048
  10. LANSOPRAZOLE [Concomitant]
     Dosage: 15MG AT UNKNOWN FREQUENCY
     Route: 048

REACTIONS (5)
  - DRUG WITHDRAWAL SYNDROME [None]
  - HEADACHE [None]
  - NAUSEA [None]
  - PARAESTHESIA [None]
  - VISION BLURRED [None]
